FAERS Safety Report 13903134 (Version 4)
Quarter: 2018Q1

REPORT INFORMATION
  Report Type: Spontaneous
  Country: IE (occurrence: IE)
  Receive Date: 20170824
  Receipt Date: 20180208
  Transmission Date: 20180508
  Serious: Yes (Death)
  Sender: FDA-Public Use
  Company Number: PHFR2017IE006941

PATIENT
  Age: 48 Year
  Sex: Female
  Weight: 61.1 kg

DRUGS (8)
  1. HIDROCORTISON [Concomitant]
     Active Substance: HYDROCORTISONE
     Indication: CARDIOVASCULAR DISORDER
     Dosage: 60 MG, QD
     Route: 042
  2. ENOXAPARIN [Concomitant]
     Active Substance: ENOXAPARIN
     Indication: PROPHYLAXIS
     Dosage: 20 MG, QD
     Route: 058
  3. ENTRESTO [Suspect]
     Active Substance: SACUBITRIL\VALSARTAN
     Dosage: 100 MG,(49/51 MG) BID
     Route: 048
  4. GLICLAZIDE [Concomitant]
     Active Substance: GLICLAZIDE
     Indication: DIABETES MELLITUS
     Dosage: 60 MG, QD
     Route: 048
  5. SERTRALINE [Concomitant]
     Active Substance: SERTRALINE HYDROCHLORIDE
     Indication: DEPRESSION
     Dosage: 50 MG, QD
     Route: 048
  6. AZATHIOPRINE. [Concomitant]
     Active Substance: AZATHIOPRINE
     Indication: CARDIOVASCULAR DISORDER
     Dosage: 100 MG, QD
     Route: 048
  7. ENTRESTO [Suspect]
     Active Substance: SACUBITRIL\VALSARTAN
     Indication: CARDIAC FAILURE
     Dosage: 50 MG,(24/26 MG) UNK
     Route: 048
     Dates: start: 20170511
  8. METOPROLOL. [Concomitant]
     Active Substance: METOPROLOL
     Indication: HYPERTENSION
     Dosage: 25 MG, QD
     Route: 048

REACTIONS (13)
  - Renal failure [Fatal]
  - Sinus bradycardia [Unknown]
  - Cardiac arrest [Fatal]
  - Sepsis [Fatal]
  - Respiratory failure [Fatal]
  - Intestinal ischaemia [Fatal]
  - Type 2 diabetes mellitus [Fatal]
  - Polyarteritis nodosa [Fatal]
  - Hypertension [Fatal]
  - Multiple organ dysfunction syndrome [Fatal]
  - Amylase increased [Unknown]
  - Abdominal pain [Unknown]
  - Blood lactic acid increased [Unknown]

NARRATIVE: CASE EVENT DATE: 20170619
